FAERS Safety Report 20838197 (Version 1)
Quarter: 2022Q2

REPORT INFORMATION
  Report Type: Spontaneous
  Country: US (occurrence: US)
  Receive Date: 20220517
  Receipt Date: 20220517
  Transmission Date: 20220721
  Serious: No
  Sender: FDA-Public Use
  Company Number: US-ALLERGAN-2211256US

PATIENT
  Sex: Female

DRUGS (1)
  1. KYBELLA [Suspect]
     Active Substance: DEOXYCHOLIC ACID
     Indication: Product used for unknown indication
     Dosage: UNK, SINGLE
     Dates: start: 20211119, end: 20211119

REACTIONS (5)
  - Swelling [Not Recovered/Not Resolved]
  - Condition aggravated [Unknown]
  - Oedema [Unknown]
  - COVID-19 [Unknown]
  - Sensory loss [Unknown]

NARRATIVE: CASE EVENT DATE: 20211201
